FAERS Safety Report 6395192-1 (Version None)
Quarter: 2009Q4

REPORT INFORMATION
  Report Type: 
  Country: None (occurrence: None)
  Receive Date: 20091009
  Receipt Date: 20090930
  Transmission Date: 20100525
  Serious: Yes (Death, Other)
  Sender: FDA-Public Use
  Company Number: PHEH2009US06569

PATIENT
  Sex: Female

DRUGS (19)
  1. EXJADE [Suspect]
     Indication: APLASTIC ANAEMIA
     Dosage: 500 MG, BID
     Route: 048
     Dates: start: 20090408
  2. EXJADE [Suspect]
     Indication: HAEMOCHROMATOSIS
  3. TYLENOL (CAPLET) [Concomitant]
     Dosage: 650 MG, QD
  4. ACYCLOVIR [Concomitant]
     Dosage: 800 MG, QD
  5. AMLODIPINE [Concomitant]
     Dosage: 5 MG, QD
  6. CALCIUM CARBONATE [Concomitant]
     Dosage: 500 MG, QD
  7. DEXAMETHASONE 0.5MG TAB [Concomitant]
  8. BENADRYL ^ACHE^ [Concomitant]
     Dosage: 12.5 MG, QD
  9. DOCUSATE [Concomitant]
     Dosage: 240 MG, QHS
  10. DILANTIN                                /AUS/ [Concomitant]
  11. GUAR GUM [Concomitant]
  12. ATGAM [Concomitant]
     Dosage: 730 MG, QD
  13. MAGNESIUM OXIDE [Concomitant]
     Dosage: 400 MG, QD
  14. PROTONIX [Concomitant]
  15. SENNA [Concomitant]
     Dosage: 374 UNK, BID
     Route: 048
  16. SEPTRA [Concomitant]
     Dosage: UNK
  17. GLUCOSAMINE [Concomitant]
  18. MULTIVITAMIN ^LAPPE^ [Concomitant]
  19. METHYLPREDNISOLONE [Concomitant]

REACTIONS (17)
  - ABDOMINAL TENDERNESS [None]
  - AGITATION [None]
  - ASTHENIA [None]
  - BLOOD PRESSURE INCREASED [None]
  - CEREBRAL HAEMORRHAGE [None]
  - CONFUSIONAL STATE [None]
  - EXTENSOR PLANTAR RESPONSE [None]
  - FACIAL PALSY [None]
  - FATIGUE [None]
  - HEADACHE [None]
  - HEMIPLEGIA [None]
  - HEMISENSORY NEGLECT [None]
  - MEMORY IMPAIRMENT [None]
  - OEDEMA PERIPHERAL [None]
  - SOMNOLENCE [None]
  - THROMBOCYTOPENIA [None]
  - VISUAL IMPAIRMENT [None]
